FAERS Safety Report 7565650-2 (Version None)
Quarter: 2011Q2

REPORT INFORMATION
  Report Type: 
  Country: None (occurrence: None)
  Receive Date: 20110616
  Receipt Date: 20110614
  Transmission Date: 20111010
  Serious: Yes (Death, Hospitalization)
  Sender: FDA-Public Use
  Company Number: SP03553

PATIENT
  Age: 55 Year
  Sex: Male
  Weight: 88.4514 kg

DRUGS (5)
  1. POTASSIUM CHLORIDE [Concomitant]
  2. MOVIPREP [Suspect]
     Indication: BOWEL PREPARATION
     Dosage: ORAL
     Route: 048
     Dates: start: 20110308, end: 20110308
  3. ASPIRIN [Concomitant]
  4. HYZAAR [Concomitant]
  5. CLARITIN [Concomitant]

REACTIONS (20)
  - HYPOKALAEMIA [None]
  - BRAIN HERNIATION [None]
  - WHITE BLOOD CELL COUNT INCREASED [None]
  - NEUTROPHIL COUNT INCREASED [None]
  - CARBON DIOXIDE DECREASED [None]
  - BLOOD CALCIUM DECREASED [None]
  - UNRESPONSIVE TO STIMULI [None]
  - NO THERAPEUTIC RESPONSE [None]
  - BLOOD GLUCOSE INCREASED [None]
  - CONVULSION [None]
  - BLOOD CHLORIDE DECREASED [None]
  - MEAN PLATELET VOLUME DECREASED [None]
  - BLOOD UREA DECREASED [None]
  - BLOOD MAGNESIUM DECREASED [None]
  - MONOCYTE COUNT INCREASED [None]
  - HYPONATRAEMIC ENCEPHALOPATHY [None]
  - BRAIN OEDEMA [None]
  - CEREBRAL HAEMORRHAGE [None]
  - LYMPHOCYTE PERCENTAGE DECREASED [None]
  - INAPPROPRIATE ANTIDIURETIC HORMONE SECRETION [None]
